FAERS Safety Report 20370299 (Version 1)
Quarter: 2022Q1

REPORT INFORMATION
  Report Type: Report from Study
  Country: US (occurrence: US)
  Receive Date: 20220124
  Receipt Date: 20220124
  Transmission Date: 20220423
  Serious: Yes (Other)
  Sender: FDA-Public Use
  Company Number: US-EXELIXIS-CABO-21045952

PATIENT
  Age: 44 Year
  Sex: Female

DRUGS (1)
  1. CABOMETYX [Suspect]
     Active Substance: CABOZANTINIB S-MALATE
     Indication: Lung neoplasm malignant
     Dosage: 60 MG, QD
     Route: 048
     Dates: start: 202111

REACTIONS (7)
  - Heart rate increased [Unknown]
  - Dizziness [Unknown]
  - Dyspnoea [Unknown]
  - Hyperkeratosis [Unknown]
  - Nausea [Unknown]
  - Vomiting [Unknown]
  - Off label use [Unknown]

NARRATIVE: CASE EVENT DATE: 20211228
